FAERS Safety Report 4843857-2 (Version None)
Quarter: 2005Q4

REPORT INFORMATION
  Report Type: 
  Country: None (occurrence: None)
  Receive Date: 20051201
  Receipt Date: 20051201
  Transmission Date: 20060501
  Serious: Yes (Other)
  Sender: FDA-Public Use
  Company Number: None

PATIENT
  Age: 33 Year
  Sex: Female
  Weight: 65.7716 kg

DRUGS (3)
  1. OVCON-35 [Suspect]
     Indication: CONTRACEPTION
     Dosage: 1 PO QD
     Route: 048
  2. LIBRUIM WELLBUTRIN XL [Concomitant]
  3. TENORMIN [Concomitant]

REACTIONS (2)
  - METRORRHAGIA [None]
  - MUSCLE SPASMS [None]
